FAERS Safety Report 20906450 (Version 1)
Quarter: 2022Q2

REPORT INFORMATION
  Report Type: Spontaneous
  Country: PL (occurrence: PL)
  Receive Date: 20220602
  Receipt Date: 20220602
  Transmission Date: 20220720
  Serious: Yes (Other)
  Sender: FDA-Public Use
  Company Number: PL-AMGEN-POLSP2022091500

PATIENT
  Age: 68 Year
  Sex: Male

DRUGS (7)
  1. VECTIBIX [Suspect]
     Active Substance: PANITUMUMAB
     Indication: Colorectal cancer metastatic
     Dosage: 6 MILLIGRAM/KILOGRAM 1 HOUR INFUSION, DAY 1
     Route: 065
     Dates: start: 20220125
  2. OXALIPLATIN [Suspect]
     Active Substance: OXALIPLATIN
     Indication: Colorectal cancer metastatic
     Dosage: 85 MILLIGRAM/SQ. METER DAY 1
     Route: 042
     Dates: start: 20220125
  3. LEUCOVORIN [Suspect]
     Active Substance: LEUCOVORIN
     Indication: Colorectal cancer metastatic
     Dosage: 100 MILLIGRAM/SQ. METER 2-HOUR INFUSION, DAYS 1 TO 2
     Route: 042
     Dates: start: 20220125
  4. FLUOROURACIL [Suspect]
     Active Substance: FLUOROURACIL
     Indication: Colorectal cancer metastatic
     Dosage: 400 MILLIGRAM/SQ. METER DAYS 1 TO 2
     Route: 040
     Dates: start: 20220125
  5. FLUOROURACIL [Suspect]
     Active Substance: FLUOROURACIL
     Dosage: 600 MILLIGRAM/SQ. METER 22 HOUR INFUSION, DAYS 1 TO 2
     Route: 042
  6. ALLOPURINOL [Concomitant]
     Active Substance: ALLOPURINOL
     Indication: Hypertension
     Dosage: UNK
  7. PEGFILGRASTIM [Concomitant]
     Active Substance: PEGFILGRASTIM
     Indication: Prophylaxis
     Dosage: UNK
     Route: 065

REACTIONS (6)
  - Thrombocytopenia [Unknown]
  - Dermatitis acneiform [Unknown]
  - Dry skin [Unknown]
  - Skin exfoliation [Unknown]
  - Hypomagnesaemia [Unknown]
  - Asthenia [Unknown]
